FAERS Safety Report 8184885-1 (Version None)
Quarter: 2012Q1

REPORT INFORMATION
  Report Type: 
  Country: None (occurrence: None)
  Receive Date: 20120305
  Receipt Date: 20120301
  Transmission Date: 20120608
  Serious: Yes (Hospitalization)
  Sender: FDA-Public Use
  Company Number: US-GLAXOSMITHKLINE-A0897792A

PATIENT
  Age: 52 Year
  Sex: Female
  Weight: 105.5 kg

DRUGS (1)
  1. AVANDIA [Suspect]
     Indication: DIABETES MELLITUS
     Route: 048
     Dates: start: 20030201, end: 20030501

REACTIONS (2)
  - CORONARY ARTERY DISEASE [None]
  - ACUTE CORONARY SYNDROME [None]
